FAERS Safety Report 7455651-7 (Version None)
Quarter: 2011Q2

REPORT INFORMATION
  Report Type: 
  Country: None (occurrence: None)
  Receive Date: 20110503
  Receipt Date: 20110419
  Transmission Date: 20111010
  Serious: Yes (Hospitalization)
  Sender: FDA-Public Use
  Company Number: GB-WATSON-2011-03913

PATIENT
  Age: 85 Year
  Sex: Female

DRUGS (1)
  1. DOBUTAMINE HCL [Suspect]
     Indication: STRESS ECHOCARDIOGRAM
     Dosage: 10 UG/KG/MIN AT 3 MIN INTERVALS TO PEAK DOSE OF 30 UG/KG/MIN
     Route: 065

REACTIONS (1)
  - STRESS CARDIOMYOPATHY [None]
